FAERS Safety Report 4108021 (Version 3)
Quarter: 2017Q1

REPORT INFORMATION
  Report Type: Spontaneous
  Country: JP (occurrence: JP)
  Receive Date: 20040316
  Receipt Date: 20170323
  Transmission Date: 20170429
  Serious: Yes (Death, Hospitalization, Other)
  Sender: FDA-Public Use
  Company Number: JP-BRISTOL-MYERS SQUIBB COMPANY-12524682

PATIENT
  Age: 47 Year
  Sex: Female

DRUGS (6)
  1. MEDROXYPROGESTERONE ACETATE. [Concomitant]
     Active Substance: MEDROXYPROGESTERONE ACETATE
     Indication: PRODUCT USED FOR UNKNOWN INDICATION
     Dosage: 1.2 G, UNK
     Route: 048
     Dates: start: 20010915, end: 20011213
  2. AREDIA [Concomitant]
     Active Substance: PAMIDRONATE DISODIUM
     Indication: PRODUCT USED FOR UNKNOWN INDICATION
     Dosage: 45 MG, UNK
     Route: 042
     Dates: start: 20010705, end: 20011130
  3. TAXOL [Suspect]
     Active Substance: PACLITAXEL
     Indication: BREAST CANCER METASTATIC
     Dosage: TAXOL 175 MG/M^2 FROM 18-JUN TO 09-JUL-2001 (2 DAYS)
     Route: 042
     Dates: start: 20010730, end: 20010903
  4. 5-FU [Suspect]
     Active Substance: FLUOROURACIL
     Indication: BREAST CANCER METASTATIC
     Dosage: 500 MG, UNK
     Route: 042
     Dates: start: 20010917, end: 20011209
  5. BRIPLATIN [Suspect]
     Active Substance: CISPLATIN
     Indication: BREAST CANCER METASTATIC
     Dosage: 7 MG, UNK
     Route: 042
     Dates: start: 20010917, end: 20011207
  6. ARIMIDEX [Concomitant]
     Active Substance: ANASTROZOLE
     Indication: PRODUCT USED FOR UNKNOWN INDICATION
     Dosage: 1 MG, UNK
     Route: 048
     Dates: start: 20010614, end: 20011213

REACTIONS (7)
  - Hepatic atrophy [Fatal]
  - Hepatic failure [Fatal]
  - Stomatitis [Recovered/Resolved]
  - Hepatic cirrhosis [Unknown]
  - Pyrexia [Recovered/Resolved]
  - Breast cancer metastatic [Fatal]
  - Neutropenia [Recovered/Resolved]

NARRATIVE: CASE EVENT DATE: 20010908
